FAERS Safety Report 20654747 (Version 4)
Quarter: 2022Q2

REPORT INFORMATION
  Report Type: Spontaneous
  Country: US (occurrence: US)
  Receive Date: 20220330
  Receipt Date: 20220524
  Transmission Date: 20220720
  Serious: Yes (Other)
  Sender: FDA-Public Use
  Company Number: US-JNJFOC-20220352728

PATIENT
  Age: 37 Year
  Sex: Female
  Weight: 80.358 kg

DRUGS (8)
  1. SPRAVATO [Suspect]
     Active Substance: ESKETAMINE
     Indication: Depression
     Dates: start: 20191211, end: 20220107
  2. SPRAVATO [Suspect]
     Active Substance: ESKETAMINE
     Dates: start: 20220324, end: 20220324
  3. BUSPIRONE [Concomitant]
     Active Substance: BUSPIRONE HYDROCHLORIDE
     Indication: Anxiety
     Dosage: 2021 TO PRESENT
     Route: 065
     Dates: start: 2021
  4. CLOMIPRAMINE [Concomitant]
     Active Substance: CLOMIPRAMINE
     Indication: Depression
     Dosage: 2020-PRESENT
     Route: 065
     Dates: start: 2020
  5. VYVANSE [Concomitant]
     Active Substance: LISDEXAMFETAMINE DIMESYLATE
     Indication: Binge eating
     Dosage: 2020-PRESENT
     Route: 065
     Dates: start: 2020
  6. BUSPAR [Concomitant]
     Active Substance: BUSPIRONE HYDROCHLORIDE
     Indication: Anxiety
  7. ANAFRANIL [Concomitant]
     Active Substance: CLOMIPRAMINE HYDROCHLORIDE
     Indication: Depression
  8. RITALIN [Concomitant]
     Active Substance: METHYLPHENIDATE HYDROCHLORIDE
     Indication: Sleep apnoea syndrome

REACTIONS (4)
  - Suicidal ideation [Recovering/Resolving]
  - Depression [Recovering/Resolving]
  - Device malfunction [Unknown]
  - Product complaint [Unknown]

NARRATIVE: CASE EVENT DATE: 20220101
